FAERS Safety Report 12396737 (Version 1)
Quarter: 2016Q2

REPORT INFORMATION
  Report Type: Spontaneous
  Country: US (occurrence: US)
  Receive Date: 20160524
  Receipt Date: 20160524
  Transmission Date: 20160815
  Serious: Yes (Death, Hospitalization, Other)
  Sender: FDA-Public Use
  Company Number: US-ZYDUS-011154

PATIENT
  Age: 82 Year
  Sex: Male

DRUGS (1)
  1. AZATHIOPRINE. [Suspect]
     Active Substance: AZATHIOPRINE
     Indication: IMMUNOSUPPRESSION
     Route: 065

REACTIONS (15)
  - Diffuse large B-cell lymphoma [Unknown]
  - Condition aggravated [Unknown]
  - Weight decreased [Unknown]
  - Fatigue [Unknown]
  - Nystagmus [Unknown]
  - Drooling [Unknown]
  - CSF lymphocyte count increased [Unknown]
  - Death [Fatal]
  - Dysphagia [Unknown]
  - Horner^s syndrome [Unknown]
  - Decreased appetite [Unknown]
  - Respiratory failure [Unknown]
  - Dysarthria [Unknown]
  - Palatal disorder [Unknown]
  - Speech sound disorder [Unknown]
